FAERS Safety Report 18008111 (Version 1)
Quarter: 2020Q3

REPORT INFORMATION
  Report Type: Spontaneous
  Country: US (occurrence: US)
  Receive Date: 20200709
  Receipt Date: 20200709
  Transmission Date: 20201103
  Serious: No
  Sender: FDA-Public Use
  Company Number: None

PATIENT

DRUGS (2)
  1. SELENIUM SULFIDE. [Suspect]
     Active Substance: SELENIUM SULFIDE
  2. SELENIOUS ACID. [Suspect]
     Active Substance: SELENIOUS ACID

REACTIONS (3)
  - Product label confusion [None]
  - Wrong dose [None]
  - Circumstance or information capable of leading to medication error [None]
